FAERS Safety Report 26202815 (Version 1)
Quarter: 2025Q4

REPORT INFORMATION
  Report Type: Spontaneous
  Country: GB (occurrence: GB)
  Receive Date: 20251226
  Receipt Date: 20251226
  Transmission Date: 20260118
  Serious: Yes (Hospitalization, Other)
  Sender: HIKMA
  Company Number: GB-MLMSERVICE-20251208-PI744542-00165-1

PATIENT
  Age: 66 Year
  Sex: Female

DRUGS (3)
  1. GEMCITABINE [Suspect]
     Active Substance: GEMCITABINE
     Indication: Pancreatic carcinoma metastatic
     Dosage: AN INTRAVENOUS INFUSION VIA A PERIPHERALLY INSERTED CENTRAL CANNULA (PICC), WHICH HAD BEEN INSERTED 2 WEEKS PRIOR
  2. GEMCITABINE [Suspect]
     Active Substance: GEMCITABINE
     Indication: Metastases to lymph nodes
  3. GEMCITABINE [Suspect]
     Active Substance: GEMCITABINE
     Indication: Metastases to lung

REACTIONS (1)
  - Atrial tachycardia [Recovered/Resolved]
